FAERS Safety Report 21872878 (Version 1)
Quarter: 2023Q1

REPORT INFORMATION
  Report Type: Spontaneous
  Country: CA (occurrence: CA)
  Receive Date: 20230117
  Receipt Date: 20230117
  Transmission Date: 20230417
  Serious: Yes (Death)
  Sender: FDA-Public Use
  Company Number: CA-PFIZER INC-202300021807

PATIENT
  Age: 3 Decade
  Sex: Female

DRUGS (5)
  1. VANCOMYCIN HYDROCHLORIDE [Suspect]
     Active Substance: VANCOMYCIN HYDROCHLORIDE
     Indication: Necrotising fasciitis
     Dosage: UNK
     Route: 065
  2. SODIUM BICARBONATE [Suspect]
     Active Substance: SODIUM BICARBONATE
     Dosage: UNK
     Route: 065
  3. CLINDAMYCIN [Suspect]
     Active Substance: CLINDAMYCIN
     Indication: Necrotising fasciitis
     Dosage: UNK
     Route: 065
  4. HUMAN IMMUNOGLOBULIN G [Suspect]
     Active Substance: HUMAN IMMUNOGLOBULIN G
     Indication: Toxic shock syndrome
     Dosage: UNK
     Route: 042
  5. PIPERACILLIN SODIUM\TAZOBACTAM SODIUM [Suspect]
     Active Substance: PIPERACILLIN SODIUM\TAZOBACTAM SODIUM
     Indication: Necrotising fasciitis
     Dosage: UNK
     Route: 065

REACTIONS (1)
  - Drug ineffective [Fatal]
